FAERS Safety Report 13164667 (Version 1)
Quarter: 2017Q1

REPORT INFORMATION
  Report Type: Spontaneous
  Country: IT (occurrence: IT)
  Receive Date: 20170130
  Receipt Date: 20170130
  Transmission Date: 20170428
  Serious: Yes (Hospitalization)
  Sender: FDA-Public Use
  Company Number: IT-MYLANLABS-2017M1004981

PATIENT

DRUGS (1)
  1. BRUFEN 600 MG TABLET [Suspect]
     Active Substance: IBUPROFEN
     Indication: MIGRAINE
     Dosage: 6 DF TOTAL
     Route: 048
     Dates: start: 20150701, end: 20150701

REACTIONS (3)
  - Malaise [Recovered/Resolved]
  - Abdominal pain upper [Recovered/Resolved]
  - Drug abuse [Recovered/Resolved]

NARRATIVE: CASE EVENT DATE: 20150701
